FAERS Safety Report 9747167 (Version 2)
Quarter: 2013Q4

REPORT INFORMATION
  Report Type: Spontaneous
  Country: CN (occurrence: CN)
  Receive Date: 20131211
  Receipt Date: 20131211
  Transmission Date: 20140711
  Serious: Yes (Other)
  Sender: FDA-Public Use
  Company Number: CN-ROCHE-1309846

PATIENT
  Age: 26 Year
  Sex: Female

DRUGS (1)
  1. PEGASYS [Suspect]
     Indication: HEPATITIS B
     Route: 058

REACTIONS (1)
  - Jaundice [Recovering/Resolving]
